FAERS Safety Report 4619480-1 (Version None)
Quarter: 2005Q1

REPORT INFORMATION
  Report Type: 
  Country: None (occurrence: None)
  Receive Date: 20050325
  Receipt Date: 20050315
  Transmission Date: 20050727
  Serious: Yes (Death)
  Sender: FDA-Public Use
  Company Number: BR-JNJFOC-20050304979

PATIENT
  Age: 85 Year
  Sex: Female

DRUGS (5)
  1. RISPERDAL [Suspect]
  2. RISPERDAL [Suspect]
  3. REMINYL [Suspect]
  4. NIMODIPINE [Concomitant]
  5. NORFLOXACIN [Concomitant]

REACTIONS (2)
  - DEATH [None]
  - URINARY TRACT INFECTION [None]
